FAERS Safety Report 7457601-6 (Version None)
Quarter: 2011Q2

REPORT INFORMATION
  Report Type: 
  Country: None (occurrence: None)
  Receive Date: 20110504
  Receipt Date: 20110426
  Transmission Date: 20111010
  Serious: Yes (Other)
  Sender: FDA-Public Use
  Company Number: NL-ABBOTT-11P-114-0722094-00

PATIENT
  Age: 11 Year
  Sex: Female

DRUGS (1)
  1. DEPAKENE [Suspect]
     Indication: EPILEPSY
     Dosage: EXTENDED RELEASE, TWICE A DAY
     Route: 048
     Dates: start: 20050101, end: 20080101

REACTIONS (6)
  - HALLUCINATION [None]
  - TREMOR [None]
  - CONSTIPATION [None]
  - NAUSEA [None]
  - WEIGHT INCREASED [None]
  - DISTURBANCE IN ATTENTION [None]
